FAERS Safety Report 9821043 (Version 2)
Quarter: 2014Q3

REPORT INFORMATION
  Report Type: Spontaneous
  Country: US (occurrence: US)
  Receive Date: 20140116
  Receipt Date: 20140826
  Transmission Date: 20150326
  Serious: Yes (Hospitalization, Other)
  Sender: FDA-Public Use
  Company Number: US-009507513-1401USA007046

PATIENT
  Age: 45 Year
  Sex: Female

DRUGS (1)
  1. NUVARING [Suspect]
     Active Substance: ETHINYL ESTRADIOL\ETONOGESTREL
     Indication: UTERINE HAEMORRHAGE
     Dosage: UNK
     Route: 067
     Dates: start: 201204, end: 201212

REACTIONS (7)
  - Deep vein thrombosis [Unknown]
  - Breast prosthesis implantation [Unknown]
  - Off label use [Unknown]
  - Endometrial ablation [Unknown]
  - Depression [Unknown]
  - Pulmonary embolism [Unknown]
  - Migraine [Unknown]

NARRATIVE: CASE EVENT DATE: 201212
